FAERS Safety Report 20864711 (Version 1)
Quarter: 2022Q2

REPORT INFORMATION
  Report Type: Spontaneous
  Country: FR (occurrence: FR)
  Receive Date: 20220524
  Receipt Date: 20220524
  Transmission Date: 20220721
  Serious: Yes (Hospitalization)
  Sender: FDA-Public Use
  Company Number: None

PATIENT
  Age: 47 Year
  Sex: Female

DRUGS (1)
  1. IMRALDI [Suspect]
     Active Substance: ADALIMUMAB
     Indication: Rheumatoid arthritis
     Route: 051
     Dates: start: 202108

REACTIONS (2)
  - Myocarditis [Not Recovered/Not Resolved]
  - Product use issue [Unknown]

NARRATIVE: CASE EVENT DATE: 20220310
